FAERS Safety Report 17144214 (Version 2)
Quarter: 2020Q3

REPORT INFORMATION
  Report Type: Spontaneous
  Country: CA (occurrence: CA)
  Receive Date: 20191212
  Receipt Date: 20200824
  Transmission Date: 20201102
  Serious: Yes (Hospitalization, Other)
  Sender: FDA-Public Use
  Company Number: CA-PFIZER INC-2019535096

PATIENT
  Age: 1 Year
  Weight: 12.8 kg

DRUGS (7)
  1. KETOROLAC TROMETHAMINE. [Suspect]
     Active Substance: KETOROLAC TROMETHAMINE
     Indication: INDUCTION OF ANAESTHESIA
     Dosage: 5 MG, UNK
     Route: 042
     Dates: start: 2019, end: 2019
  2. ZOFRAN [Suspect]
     Active Substance: ONDANSETRON HYDROCHLORIDE
     Indication: INDUCTION OF ANAESTHESIA
     Dosage: 1 MG, UNK
     Route: 042
     Dates: start: 20190227, end: 20190227
  3. SALBUTAMOL [Concomitant]
     Active Substance: ALBUTEROL
     Dosage: UNK
  4. DECADRON [Suspect]
     Active Substance: DEXAMETHASONE
     Indication: INDUCTION OF ANAESTHESIA
     Dosage: 1 MG, UNK
     Route: 042
     Dates: start: 20190227, end: 20190227
  5. SEVOFLURANE. [Suspect]
     Active Substance: SEVOFLURANE
     Indication: INDUCTION OF ANAESTHESIA
     Dosage: 8 %, UNK
     Route: 055
     Dates: start: 20190227, end: 20190227
  6. CICLESONIDE [Concomitant]
     Active Substance: CICLESONIDE
     Dosage: UNK
  7. DEXMEDETOMIDINE HYDROCHLORIDE. [Suspect]
     Active Substance: DEXMEDETOMIDINE HYDROCHLORIDE
     Indication: INDUCTION OF ANAESTHESIA
     Dosage: 5 UG
     Route: 042
     Dates: start: 20190227, end: 20190227

REACTIONS (4)
  - Off label use [Unknown]
  - Neonatal respiratory depression [Unknown]
  - Oxygen saturation decreased [Unknown]
  - Product use issue [Unknown]
